FAERS Safety Report 8115508-5 (Version None)
Quarter: 2012Q1

REPORT INFORMATION
  Report Type: 
  Country: None (occurrence: None)
  Receive Date: 20120206
  Receipt Date: 20120127
  Transmission Date: 20120608
  Serious: Yes (Hospitalization)
  Sender: FDA-Public Use
  Company Number: IE-NAPPMUNDI-GBR-2012-0009674

PATIENT
  Sex: Male

DRUGS (3)
  1. OXYCODONE HCL [Suspect]
     Indication: BREAKTHROUGH PAIN
     Route: 048
  2. FENTANYL CITRATE [Concomitant]
     Indication: ANALGESIC THERAPY
     Route: 062
  3. OPIUM/NALOXONE TAB [Suspect]
     Indication: METASTASIS
     Dosage: 20 MG, BID
     Route: 048

REACTIONS (2)
  - DRUG INEFFECTIVE [None]
  - INTESTINAL OBSTRUCTION [None]
